FAERS Safety Report 9397183 (Version 3)
Quarter: 2013Q3

REPORT INFORMATION
  Report Type: Report from Study
  Country: RU (occurrence: RU)
  Receive Date: 20130712
  Receipt Date: 20130826
  Transmission Date: 20140515
  Serious: Yes (Hospitalization)
  Sender: FDA-Public Use
  Company Number: PHHO2013RU004217

PATIENT
  Age: 67 Year
  Sex: Male
  Weight: 77 kg

DRUGS (7)
  1. ALISKIREN [Suspect]
     Indication: CARDIAC FAILURE
     Dosage: UNK
     Route: 048
     Dates: start: 20120306, end: 20130220
  2. WARFARIN [Concomitant]
     Indication: CARDIOVASCULAR DISORDER
     Dosage: 5.0 MG, UNK
     Dates: start: 201109
  3. DIGOXIN [Concomitant]
     Indication: CARDIAC FAILURE CHRONIC
     Dosage: 0.025 MG, UNK
     Dates: start: 200610
  4. OMEPRAZOLE [Concomitant]
     Indication: GASTRITIS
     Dosage: 20.0 MG, UNK
     Dates: start: 20130313
  5. BISOPROLOL [Concomitant]
     Indication: CARDIOVASCULAR DISORDER
     Dosage: 2.5 MG, UNK
     Dates: start: 201111
  6. TORASEMIDE [Concomitant]
     Indication: CARDIAC FAILURE CHRONIC
     Dosage: 5.0 MG, UNK
     Dates: start: 201111
  7. HYPOTHIAZID [Concomitant]
     Indication: CARDIAC FAILURE CHRONIC
     Dosage: 25.0 MG, UNK
     Dates: start: 20130313, end: 20130321

REACTIONS (1)
  - Chronic hepatitis [Recovered/Resolved with Sequelae]
